FAERS Safety Report 15524729 (Version 1)
Quarter: 2018Q4

REPORT INFORMATION
  Report Type: Report from Study
  Country: MX (occurrence: MX)
  Receive Date: 20181019
  Receipt Date: 20181019
  Transmission Date: 20190205
  Serious: Yes (Other)
  Sender: FDA-Public Use
  Company Number: MX-SHIRE-MX201839515

PATIENT

DRUGS (1)
  1. HEMOFIL M [Suspect]
     Active Substance: ANTIHEMOPHILIC FACTOR HUMAN
     Indication: PRODUCT USED FOR UNKNOWN INDICATION
     Dosage: 10 WEEKLY VIALS, 2X A WEEK
     Route: 042

REACTIONS (5)
  - Gingival bleeding [Unknown]
  - Haemarthrosis [Unknown]
  - Myalgia [Unknown]
  - Toothache [Unknown]
  - Joint swelling [Unknown]
